FAERS Safety Report 9722489 (Version 1)
Quarter: 2013Q4

REPORT INFORMATION
  Report Type: Spontaneous
  Country: US (occurrence: None)
  Receive Date: 20131127
  Receipt Date: 20131127
  Transmission Date: 20140711
  Serious: Yes (Other)
  Sender: FDA-Public Use
  Company Number: None

PATIENT
  Sex: Female
  Weight: 110.22 kg

DRUGS (1)
  1. ATORVASTATIN [Suspect]
     Indication: HYPERLIPIDAEMIA
     Dosage: 1-2 MONTHS 20 MG DAILY ORAL
     Route: 048

REACTIONS (3)
  - Abdominal pain upper [None]
  - Vomiting [None]
  - Drug intolerance [None]
